FAERS Safety Report 9385914 (Version 1)
Quarter: 2013Q3

REPORT INFORMATION
  Report Type: Spontaneous
  Country: US (occurrence: US)
  Receive Date: 20130705
  Receipt Date: 20130705
  Transmission Date: 20140515
  Serious: Yes (Hospitalization)
  Sender: FDA-Public Use
  Company Number: US-ASTRAZENECA-2013SE49537

PATIENT
  Age: 75 Year
  Sex: Female
  Weight: 70.8 kg

DRUGS (10)
  1. CRESTOR [Suspect]
     Indication: CARDIAC DISORDER
     Route: 048
     Dates: start: 2003
  2. CRESTOR [Suspect]
     Indication: BLOOD CHOLESTEROL ABNORMAL
     Route: 048
     Dates: start: 2003
  3. CRESTOR [Suspect]
     Indication: CARDIAC DISORDER
     Route: 048
  4. CRESTOR [Suspect]
     Indication: BLOOD CHOLESTEROL ABNORMAL
     Route: 048
  5. BRILINTA [Suspect]
     Indication: STENT PLACEMENT
     Route: 048
     Dates: start: 20130112, end: 20130613
  6. TRIAMT/HCTZ [Suspect]
     Dosage: 37.5  25 UNK
     Route: 065
     Dates: start: 2000, end: 201303
  7. TRIAMT/HCTZ [Suspect]
     Dosage: 37.5  25 UNK
     Route: 065
     Dates: start: 201303
  8. ASPIRIN [Concomitant]
     Indication: PROPHYLAXIS
     Dates: start: 20130112
  9. LISINOPRIL [Concomitant]
     Indication: BLOOD PRESSURE
     Dates: start: 2010
  10. LISINOPRIL [Concomitant]
     Indication: BLOOD PRESSURE
     Dates: start: 2013

REACTIONS (17)
  - Dyspnoea [Recovering/Resolving]
  - Lung infection [Unknown]
  - Pneumonia [Recovered/Resolved]
  - Pericardial effusion [Unknown]
  - Cardiac disorder [Unknown]
  - Chronic obstructive pulmonary disease [Unknown]
  - Heart rate increased [Unknown]
  - Muscle spasms [Unknown]
  - Blood pressure abnormal [Unknown]
  - Contusion [Unknown]
  - Asthenia [Recovering/Resolving]
  - Confusional state [Recovering/Resolving]
  - Gait disturbance [Recovered/Resolved]
  - Fatigue [Not Recovered/Not Resolved]
  - Hypothyroidism [Not Recovered/Not Resolved]
  - Intentional drug misuse [Recovered/Resolved]
  - Drug dose omission [Unknown]
